FAERS Safety Report 18807893 (Version 1)
Quarter: 2021Q1

REPORT INFORMATION
  Report Type: Report from Study
  Country: CH (occurrence: CH)
  Receive Date: 20210129
  Receipt Date: 20210129
  Transmission Date: 20210419
  Serious: Yes (Death, Other)
  Sender: FDA-Public Use
  Company Number: CH-BAYER-2021-034857

PATIENT
  Age: 71 Year
  Sex: Male

DRUGS (3)
  1. CIPROFLOXACIN. [Suspect]
     Active Substance: CIPROFLOXACIN
     Indication: URINARY TRACT INFECTION
  2. CLONAZEPAM. [Concomitant]
     Active Substance: CLONAZEPAM
  3. TIZANIDINE. [Interacting]
     Active Substance: TIZANIDINE

REACTIONS (6)
  - Hypotension [None]
  - Hypotonia [None]
  - Muscular weakness [None]
  - Organ failure [Fatal]
  - Labelled drug-drug interaction medication error [Fatal]
  - Contraindicated product administered [None]
